FAERS Safety Report 6291246-9 (Version None)
Quarter: 2009Q3

REPORT INFORMATION
  Report Type: 
  Country: None (occurrence: None)
  Receive Date: 20090730
  Receipt Date: 20090721
  Transmission Date: 20100115
  Serious: Yes (Hospitalization, Other)
  Sender: FDA-Public Use
  Company Number: GB-ALEXION-A200800260

PATIENT

DRUGS (5)
  1. SOLIRIS [Suspect]
     Indication: PAROXYSMAL NOCTURNAL HAEMOGLOBINURIA
     Dosage: UNK, SINGLE
     Route: 042
     Dates: start: 20080812, end: 20080812
  2. SOLIRIS [Suspect]
     Dosage: 900 MG, UNK
     Route: 042
  3. HEPARIN [Concomitant]
  4. FOLIC ACID [Concomitant]
  5. OXYMETHOLONE [Concomitant]

REACTIONS (3)
  - HAEMOGLOBIN DECREASED [None]
  - HYPERTENSION [None]
  - MENINGOCOCCAL INFECTION [None]
